FAERS Safety Report 7562801-0 (Version None)
Quarter: 2011Q2

REPORT INFORMATION
  Report Type: 
  Country: None (occurrence: None)
  Receive Date: 20110615
  Receipt Date: 20110602
  Transmission Date: 20111010
  Serious: Yes (Death, Hospitalization)
  Sender: FDA-Public Use
  Company Number: KV201100003

PATIENT
  Age: 59 Year
  Sex: Male
  Weight: 95.2 kg

DRUGS (6)
  1. XATRAL /00975301/ (ALFUZOSIN) [Concomitant]
  2. DOXIUM (CALCIUM DOBESILATE) [Concomitant]
  3. LOVAZA [Concomitant]
  4. APPROVEL (IRBESARTAN) [Concomitant]
  5. VYTORIN [Concomitant]
  6. METOPROLOL SUCCINATE [Suspect]
     Indication: HYPERTENSION
     Dosage: 50 MG, QD, ORAL
     Route: 048
     Dates: start: 20080908, end: 20081205

REACTIONS (13)
  - HYPERTENSION [None]
  - DRUG INEFFECTIVE [None]
  - LOCAL SWELLING [None]
  - DISCOMFORT [None]
  - CAROTID ANEURYSM RUPTURE [None]
  - HEADACHE [None]
  - COMA [None]
  - OVERDOSE [None]
  - IRRITABLE BOWEL SYNDROME [None]
  - PAIN [None]
  - OEDEMA PERIPHERAL [None]
  - SUBARACHNOID HAEMORRHAGE [None]
  - FLUSHING [None]
